FAERS Safety Report 13736809 (Version 1)
Quarter: 2017Q3

REPORT INFORMATION
  Report Type: Spontaneous
  Country: US (occurrence: US)
  Receive Date: 20170710
  Receipt Date: 20170710
  Transmission Date: 20171127
  Serious: No
  Sender: FDA-Public Use
  Company Number: US-009507513-1706USA008877

PATIENT
  Sex: Female

DRUGS (1)
  1. NUVARING [Suspect]
     Active Substance: ETHINYL ESTRADIOL\ETONOGESTREL
     Dosage: ^3 WEEKS IN, 9 DAY BREAK^
     Route: 067

REACTIONS (3)
  - Product storage error [Unknown]
  - Inappropriate schedule of drug administration [Unknown]
  - No adverse event [Unknown]
